FAERS Safety Report 13974165 (Version 3)
Quarter: 2017Q4

REPORT INFORMATION
  Report Type: Report from Study
  Country: CA (occurrence: CA)
  Receive Date: 20170915
  Receipt Date: 20171101
  Transmission Date: 20180321
  Serious: Yes (Hospitalization)
  Sender: FDA-Public Use
  Company Number: CA-HLSUS-2017-CA-000969

PATIENT
  Age: 53 Year
  Sex: Male

DRUGS (28)
  1. CLOZARIL [Suspect]
     Active Substance: CLOZAPINE
     Dosage: 325 MG BED TIME
     Route: 048
     Dates: start: 20130321
  2. PLAVIX [Concomitant]
     Active Substance: CLOPIDOGREL BISULFATE
     Dosage: 75 MG
  3. SANDOZ EZETIMIBE [Concomitant]
     Dosage: 10 MG
  4. ACETAMINOPHEN. [Concomitant]
     Active Substance: ACETAMINOPHEN
     Dosage: 15MG
  5. TEVA-VENLAFAXINE XR [Concomitant]
     Active Substance: VENLAFAXINE HYDROCHLORIDE
     Dosage: 75 MG
  6. WELLBURTIN XL [Concomitant]
     Dosage: 300 MG AM
  7. APO RAMIPRIL [Concomitant]
     Active Substance: RAMIPRIL
     Dosage: 2.5 MG
  8. SANDOZ BISOPROLOL [Concomitant]
     Active Substance: BISOPROLOL
     Dosage: 2.5 MG AM
  9. APO GABAPENTIN [Concomitant]
     Active Substance: GABAPENTIN
     Dosage: 100 MG
  10. EURO-FOLIC [Concomitant]
     Dosage: 5 MG
  11. RAN PRAVASTATIN [Concomitant]
     Dosage: 20 MG
  12. PMS ATORVASTATIN [Concomitant]
     Dosage: 40 MG
  13. ASA EC [Concomitant]
     Active Substance: ASPIRIN
     Dosage: 81 MG
  14. PANTOPRAZOLE [Concomitant]
     Active Substance: PANTOPRAZOLE
  15. MYLAN-NITRO [Concomitant]
     Dosage: 0.4 MG PER HOUR
  16. NITRO PATCH [Concomitant]
     Active Substance: NITROGLYCERIN
     Dosage: 0.2 MG
  17. EPIVAL [Concomitant]
     Active Substance: DIVALPROEX SODIUM
     Dosage: 500 MG
  18. GLYCON [Concomitant]
     Dosage: 500 MG AM
  19. RISPERDAL CONSTA [Concomitant]
     Active Substance: RISPERIDONE
     Dosage: 50 MG
  20. APO DIVALPROEX EC [Concomitant]
     Dosage: 500 MG
  21. METONIA [Concomitant]
     Active Substance: METOCLOPRAMIDE
     Dosage: 95 MG
  22. VITAMIN B12 [Concomitant]
     Active Substance: CYANOCOBALAMIN
     Dosage: 250 MCG
  23. LIPIDIL EZ [Concomitant]
     Active Substance: FENOFIBRATE
     Dosage: 48 MG
  24. PMS LORAZEPAM [Concomitant]
     Dosage: 1 MG
  25. SANDOZ METFORMIN [Concomitant]
     Dosage: 500 MG
  26. FERROUS SULFATE. [Concomitant]
     Active Substance: FERROUS SULFATE
     Dosage: 300 MG BID
  27. EZETROL [Concomitant]
     Active Substance: EZETIMIBE
     Dosage: 10 MG HS
  28. SANDOZ FENOFIBRATE [Concomitant]

REACTIONS (1)
  - Myocardial infarction [Unknown]

NARRATIVE: CASE EVENT DATE: 20170913
